FAERS Safety Report 19559471 (Version 1)
Quarter: 2021Q3

REPORT INFORMATION
  Report Type: Spontaneous
  Country: NZ (occurrence: NZ)
  Receive Date: 20210716
  Receipt Date: 20210716
  Transmission Date: 20211014
  Serious: Yes (Other)
  Sender: FDA-Public Use
  Company Number: NZ-AMGEN-NZLSP2021049626

PATIENT
  Sex: Female

DRUGS (1)
  1. ENBREL [Suspect]
     Active Substance: ETANERCEPT
     Indication: PRODUCT USED FOR UNKNOWN INDICATION
     Dosage: UNK
     Route: 065
     Dates: start: 20210308

REACTIONS (10)
  - Lower respiratory tract infection [Unknown]
  - Nausea [Not Recovered/Not Resolved]
  - Pyrexia [Recovered/Resolved]
  - Lip swelling [Recovered/Resolved]
  - Sinusitis [Unknown]
  - Swelling face [Recovered/Resolved]
  - Injection site bruising [Recovering/Resolving]
  - Rash [Recovered/Resolved]
  - Injection site warmth [Recovering/Resolving]
  - Injection site induration [Recovering/Resolving]
